FAERS Safety Report 10585072 (Version 8)
Quarter: 2015Q3

REPORT INFORMATION
  Report Type: Report from Study
  Country: US (occurrence: US)
  Receive Date: 20141114
  Receipt Date: 20150924
  Transmission Date: 20151125
  Serious: Yes (Other)
  Sender: FDA-Public Use
  Company Number: US-SA-2014SA141170

PATIENT
  Age: 52 Year
  Sex: Female

DRUGS (5)
  1. COPAXONE [Concomitant]
     Active Substance: GLATIRAMER ACETATE
     Indication: MULTIPLE SCLEROSIS
     Dates: start: 20040801, end: 20060801
  2. AUBAGIO [Suspect]
     Active Substance: TERIFLUNOMIDE
     Indication: MULTIPLE SCLEROSIS
     Route: 048
     Dates: start: 2015
  3. AUBAGIO [Suspect]
     Active Substance: TERIFLUNOMIDE
     Indication: MULTIPLE SCLEROSIS
     Route: 048
     Dates: start: 20121101
  4. COPAXONE [Concomitant]
     Active Substance: GLATIRAMER ACETATE
     Indication: MULTIPLE SCLEROSIS
     Dates: start: 20120702, end: 20121214
  5. AUBAGIO [Suspect]
     Active Substance: TERIFLUNOMIDE
     Indication: MULTIPLE SCLEROSIS
     Route: 048
     Dates: start: 20121215, end: 201505

REACTIONS (6)
  - Gait disturbance [Not Recovered/Not Resolved]
  - Fatigue [Unknown]
  - Musculoskeletal pain [Recovering/Resolving]
  - Drug dose omission [Unknown]
  - Ophthalmic herpes simplex [Unknown]
  - Musculoskeletal discomfort [Unknown]
